FAERS Safety Report 8782847 (Version 2)
Quarter: 2012Q4

REPORT INFORMATION
  Report Type: 
  Country: GB (occurrence: GB)
  Receive Date: 20120913
  Receipt Date: 20121005
  Transmission Date: 20130627
  Serious: Yes (Hospitalization, Other)
  Sender: FDA-Public Use
  Company Number: GB-GLAXOSMITHKLINE-B0828474A

PATIENT
  Age: 34 Year
  Sex: Male

DRUGS (1)
  1. MALARONE [Suspect]
     Indication: MALARIA PROPHYLAXIS
     Route: 048
     Dates: start: 201008, end: 201208

REACTIONS (3)
  - Gastric ulcer [Unknown]
  - Abdominal pain upper [Unknown]
  - Dyspnoea [Unknown]
